FAERS Safety Report 4627143-1 (Version None)
Quarter: 2005Q2

REPORT INFORMATION
  Report Type: 
  Country: None (occurrence: None)
  Receive Date: 20050405
  Receipt Date: 20040927
  Transmission Date: 20051028
  Serious: Yes (Other)
  Sender: FDA-Public Use
  Company Number: FR-GLAXOSMITHKLINE-B0346614A

PATIENT
  Age: 32 Year
  Sex: Male
  Weight: 61 kg

DRUGS (1)
  1. MALARONE [Suspect]
     Indication: MALARIA PROPHYLAXIS
     Dosage: 1TAB PER DAY
     Route: 048
     Dates: start: 20040801, end: 20040822

REACTIONS (5)
  - ANGIONEUROTIC OEDEMA [None]
  - EOSINOPHIL COUNT INCREASED [None]
  - URTICARIA [None]
  - URTICARIA GENERALISED [None]
  - WHITE BLOOD CELL COUNT INCREASED [None]
